FAERS Safety Report 6260485-5 (Version None)
Quarter: 2009Q3

REPORT INFORMATION
  Report Type: 
  Country: None (occurrence: None)
  Receive Date: 20090706
  Receipt Date: 20090622
  Transmission Date: 20100115
  Serious: Yes (Hospitalization)
  Sender: FDA-Public Use
  Company Number: 006885

PATIENT
  Age: 83 Year
  Sex: Male
  Weight: 58 kg

DRUGS (9)
  1. PLETAL [Suspect]
     Indication: ARTERIOSCLEROSIS OBLITERANS
     Dosage: 200 MG, DAILY DOSE
     Route: 048
     Dates: start: 20051205
  2. CARVEDILOL [Concomitant]
  3. CONTOL (CHLORDIAZEPOXIDE) [Concomitant]
  4. ALLOPURINOL [Concomitant]
  5. SPIRIVA [Concomitant]
  6. VENTELIN (SALBUTAMOL SULFATE) [Concomitant]
  7. EPADEL (ETHYL ICOSAPENTATE) [Concomitant]
  8. NERIPROCT ( DIFLUCORTOLONE VALERATE, LIDOCAINE) [Concomitant]
  9. BLOPRESS (CANDESARTAN CILEXITIL) [Concomitant]

REACTIONS (5)
  - CEREBRAL HAEMORRHAGE [None]
  - FALL [None]
  - HYPOAESTHESIA [None]
  - RIB FRACTURE [None]
  - SUBDURAL HAEMATOMA [None]
